FAERS Safety Report 5071429-6 (Version None)
Quarter: 2006Q3

REPORT INFORMATION
  Report Type: 
  Country: None (occurrence: None)
  Receive Date: 20060803
  Receipt Date: 20060803
  Transmission Date: 20061208
  Serious: Yes (Life-Threatening)
  Sender: FDA-Public Use
  Company Number: None

PATIENT
  Age: 76 Year
  Sex: Female
  Weight: 45 kg

DRUGS (1)
  1. METHOTREXATE [Suspect]
     Indication: RHEUMATOID ARTHRITIS
     Dosage: 7.5 MG WEEKLY PO
     Route: 048

REACTIONS (5)
  - ANAEMIA [None]
  - MOUTH ULCERATION [None]
  - NEUTROPENIA [None]
  - OEDEMA PERIPHERAL [None]
  - TOXIC EPIDERMAL NECROLYSIS [None]
